FAERS Safety Report 5822034-2 (Version None)
Quarter: 2008Q3

REPORT INFORMATION
  Report Type: 
  Country: None (occurrence: None)
  Receive Date: 20080724
  Receipt Date: 20080714
  Transmission Date: 20090109
  Serious: Yes (Death, Hospitalization)
  Sender: FDA-Public Use
  Company Number: IN-BAXTER-2008BH007353

PATIENT
  Age: 43 Year
  Sex: Male
  Weight: 61 kg

DRUGS (1)
  1. DIANEAL [Suspect]
     Indication: RENAL FAILURE CHRONIC
     Route: 033
     Dates: start: 20080625

REACTIONS (3)
  - ABDOMINAL PAIN [None]
  - HYPERTENSION [None]
  - MYOCARDIAL ISCHAEMIA [None]
